FAERS Safety Report 23521903 (Version 1)
Quarter: 2024Q1

REPORT INFORMATION
  Report Type: Spontaneous
  Country: IT (occurrence: IT)
  Receive Date: 20240214
  Receipt Date: 20240214
  Transmission Date: 20240410
  Serious: Yes (Other)
  Sender: FDA-Public Use
  Company Number: None

PATIENT
  Age: 14 Year
  Sex: Male

DRUGS (5)
  1. AZACITIDINE [Suspect]
     Active Substance: AZACITIDINE
     Indication: Acute myeloid leukaemia
     Dosage: 125 MG/DAY FOR 7 DAYS
  2. AZACITIDINE [Suspect]
     Active Substance: AZACITIDINE
     Indication: Acute myeloid leukaemia recurrent
     Dosage: FOR 7 DAYS
  3. VENETOCLAX [Suspect]
     Active Substance: VENETOCLAX
     Indication: Acute myeloid leukaemia
     Dosage: FOR 28 DAYS
  4. VENETOCLAX [Suspect]
     Active Substance: VENETOCLAX
     Indication: Acute myeloid leukaemia recurrent
     Dosage: FOR 28 DAYS
  5. VENETOCLAX [Suspect]
     Active Substance: VENETOCLAX
     Dosage: INCREASING BY 100 MG/DAY UP TO 800 MG/DAY FOR 28 DAYS GRADUALLY INCREASED BY 100 MG/DAY UP TO A DOSE

REACTIONS (11)
  - Fluid retention [Recovered/Resolved]
  - Escherichia sepsis [Unknown]
  - Stenotrophomonas infection [Unknown]
  - Stomatitis [Unknown]
  - Staphylococcal sepsis [Unknown]
  - Escherichia sepsis [Unknown]
  - Staphylococcal sepsis [Unknown]
  - Urticaria [Recovered/Resolved]
  - Diarrhoea [Unknown]
  - Oedema peripheral [Unknown]
  - Infection [Recovered/Resolved]
